FAERS Safety Report 18240013 (Version 2)
Quarter: 2020Q3

REPORT INFORMATION
  Report Type: Report from Study
  Country: None (occurrence: ES)
  Receive Date: 20200908
  Receipt Date: 20200921
  Transmission Date: 20201103
  Serious: Yes (Other)
  Sender: FDA-Public Use
  Company Number: ES-ABBVIE-20K-144-3554197-00

PATIENT
  Age: 91 Year
  Sex: Female
  Weight: 60 kg

DRUGS (2)
  1. DUODOPA [Suspect]
     Active Substance: CARBIDOPA\LEVODOPA
  2. DUODOPA [Suspect]
     Active Substance: CARBIDOPA\LEVODOPA
     Indication: PARKINSON^S DISEASE
     Route: 050
     Dates: start: 20191022

REACTIONS (5)
  - Protein deficiency [Recovering/Resolving]
  - Weight decreased [Not Recovered/Not Resolved]
  - Freezing phenomenon [Unknown]
  - Malabsorption [Unknown]
  - Tremor [Unknown]

NARRATIVE: CASE EVENT DATE: 2020
